FAERS Safety Report 9999033 (Version 1)
Quarter: 2014Q1

REPORT INFORMATION
  Report Type: Spontaneous
  Country: US (occurrence: None)
  Receive Date: 20140311
  Receipt Date: 20140311
  Transmission Date: 20141002
  Serious: Yes (Other)
  Sender: FDA-Public Use
  Company Number: None

PATIENT
  Age: 77 Year
  Sex: Male

DRUGS (1)
  1. REVLIMID CELGENE [Suspect]
     Indication: PLASMA CELL MYELOMA
     Dates: start: 201106, end: 201403

REACTIONS (2)
  - Tumour marker increased [None]
  - Drug ineffective [None]
